FAERS Safety Report 25216118 (Version 1)
Quarter: 2025Q2

REPORT INFORMATION
  Report Type: Report from Study
  Country: CN (occurrence: CN)
  Receive Date: 20250418
  Receipt Date: 20250418
  Transmission Date: 20250717
  Serious: Yes (Death, Other)
  Sender: ROCHE
  Company Number: CN-ROCHE-10000254521

PATIENT

DRUGS (10)
  1. ATEZOLIZUMAB [Suspect]
     Active Substance: ATEZOLIZUMAB
     Indication: Hepatocellular carcinoma
     Route: 065
  2. IPILIMUMAB [Suspect]
     Active Substance: IPILIMUMAB
     Indication: Hepatocellular carcinoma
     Route: 065
  3. NIVOLUMAB [Suspect]
     Active Substance: NIVOLUMAB
     Indication: Hepatocellular carcinoma
     Dosage: 3 MG/KG Q3W FOR FOUR DOSES IN THE 3-WEEK SCHEDULE, 3 MG/KG Q2W FOR FOUR DOSES IN THE 6-WEEK SCHEDULE
     Route: 065
  4. NIVOLUMAB [Suspect]
     Active Substance: NIVOLUMAB
     Dosage: 3 MG/KG Q3W FOR FOUR DOSES IN THE 3-WEEK SCHEDULE, 3 MG/KG Q2W FOR FOUR DOSES IN THE 6-WEEK SCHEDULE
     Route: 065
  5. SINTILIMAB [Suspect]
     Active Substance: SINTILIMAB
     Indication: Hepatocellular carcinoma
     Route: 065
  6. TISLELIZUMAB [Suspect]
     Active Substance: TISLELIZUMAB
     Indication: Hepatocellular carcinoma
     Route: 065
  7. TORIPALIMAB [Suspect]
     Active Substance: TORIPALIMAB
     Indication: Hepatocellular carcinoma
     Route: 065
  8. DURVALUMAB [Suspect]
     Active Substance: DURVALUMAB
     Indication: Hepatocellular carcinoma
     Route: 065
  9. PEMBROLIZUMAB [Suspect]
     Active Substance: PEMBROLIZUMAB
     Indication: Hepatocellular carcinoma
     Route: 065
  10. CAMRELIZUMAB [Suspect]
     Active Substance: CAMRELIZUMAB
     Indication: Hepatocellular carcinoma
     Route: 065

REACTIONS (13)
  - Disease progression [Fatal]
  - Rash [Unknown]
  - Dyspepsia [Unknown]
  - Decreased appetite [Unknown]
  - Fatigue [Unknown]
  - Alanine aminotransferase increased [Unknown]
  - Aspartate aminotransferase increased [Unknown]
  - Diarrhoea [Unknown]
  - Cortisol decreased [Unknown]
  - Lipase increased [Unknown]
  - Hyponatraemia [Unknown]
  - Thyroid disorder [Unknown]
  - Abdominal pain [Unknown]
